FAERS Safety Report 10606365 (Version 1)
Quarter: 2014Q4

REPORT INFORMATION
  Report Type: Spontaneous
  Country: IT (occurrence: IT)
  Receive Date: 20141125
  Receipt Date: 20141125
  Transmission Date: 20150529
  Serious: Yes (Hospitalization)
  Sender: FDA-Public Use
  Company Number: PHHY2014IT151411

PATIENT
  Age: 80 Year
  Sex: Female

DRUGS (2)
  1. EXELON PATCH [Suspect]
     Active Substance: RIVASTIGMINE
     Indication: DEMENTIA
     Dosage: 4.6 MG, QD (PER 24 HOURS)
     Route: 062
     Dates: start: 20140101
  2. EXELON PATCH [Suspect]
     Active Substance: RIVASTIGMINE
     Dosage: (SWALLOWED ONE EXELON PATCH)
     Route: 048
     Dates: start: 20140720, end: 20140720

REACTIONS (3)
  - Nausea [Recovered/Resolved]
  - Incorrect route of drug administration [Recovered/Resolved]
  - Vomiting [Recovered/Resolved]

NARRATIVE: CASE EVENT DATE: 20140720
